FAERS Safety Report 22269764 (Version 1)
Quarter: 2023Q2

REPORT INFORMATION
  Report Type: Spontaneous
  Country: BR (occurrence: None)
  Receive Date: 20230501
  Receipt Date: 20230501
  Transmission Date: 20230721
  Serious: Yes (Other)
  Sender: FDA-Public Use
  Company Number: 2023A096878

PATIENT
  Age: 76 Year
  Sex: Female

DRUGS (10)
  1. XIGDUO XR [Suspect]
     Active Substance: DAPAGLIFLOZIN PROPANEDIOL\METFORMIN HYDROCHLORIDE
     Dosage: 1 TABLET AFTER WAKE UP
     Route: 048
     Dates: start: 2021
  2. PANTOPRAZOLE [Concomitant]
     Active Substance: PANTOPRAZOLE
     Dosage: 40.0MG UNKNOWN
     Dates: start: 2019
  3. ASEA [Concomitant]
     Dosage: 40.0MG UNKNOWN
     Dates: start: 2019
  4. NIENZA [Concomitant]
     Dosage: 12.5
     Dates: start: 2019
  5. ASPIRIN [Concomitant]
     Active Substance: ASPIRIN
     Dosage: 100.0MG UNKNOWN
     Dates: start: 2019
  6. ADENOSINE/ALLOPURINOL/GLUTATHIONE/MAGNESIUM SULFATE/POTASSIUM PHOSPHAT [Concomitant]
     Dosage: 300.0MG UNKNOWN
     Dates: start: 2019
  7. ATEROMA [Concomitant]
     Dosage: 40.0MG UNKNOWN
     Dates: start: 2019
  8. ATELOP [Concomitant]
     Dosage: 5.0MG UNKNOWN
     Dates: start: 2019
  9. ALPRAZOLAM [Concomitant]
     Active Substance: ALPRAZOLAM
     Dosage: 0.5
     Dates: start: 2019
  10. FLUTICASONE FUROATE\VILANTEROL TRIFENATATE [Concomitant]
     Active Substance: FLUTICASONE FUROATE\VILANTEROL TRIFENATATE
     Dates: start: 2019

REACTIONS (2)
  - Cerebrovascular accident [Unknown]
  - Off label use [Not Recovered/Not Resolved]

NARRATIVE: CASE EVENT DATE: 20210926
